FAERS Safety Report 10047467 (Version 2)
Quarter: 2014Q2

REPORT INFORMATION
  Report Type: Spontaneous
  Country: JP (occurrence: JP)
  Receive Date: 20140331
  Receipt Date: 20140414
  Transmission Date: 20141212
  Serious: Yes (Hospitalization)
  Sender: FDA-Public Use
  Company Number: JP-JNJFOC-20140315103

PATIENT
  Age: 88 Year
  Sex: Female

DRUGS (9)
  1. XARELTO [Suspect]
     Indication: CEREBROVASCULAR ACCIDENT PROPHYLAXIS
     Route: 048
     Dates: start: 20140120, end: 20140220
  2. XARELTO [Suspect]
     Indication: ATRIAL FIBRILLATION
     Route: 048
     Dates: start: 20140120, end: 20140220
  3. TANATRIL [Concomitant]
     Route: 048
  4. ARTIST [Concomitant]
     Route: 048
  5. DIART [Concomitant]
     Route: 048
  6. FERROMIA [Concomitant]
     Route: 048
  7. ALDACTONE A [Concomitant]
     Route: 048
  8. NEXIUM [Concomitant]
     Route: 048
  9. CELECOXIB [Concomitant]
     Indication: ARTHRALGIA
     Route: 048

REACTIONS (1)
  - Jaundice acholuric [Recovered/Resolved]
